FAERS Safety Report 5066292-3 (Version None)
Quarter: 2006Q3

REPORT INFORMATION
  Report Type: 
  Country: None (occurrence: None)
  Receive Date: 20060801
  Receipt Date: 20060727
  Transmission Date: 20061208
  Serious: Yes (Hospitalization)
  Sender: FDA-Public Use
  Company Number: 2006CG01282

PATIENT
  Age: 55 Year
  Sex: Male
  Weight: 74 kg

DRUGS (9)
  1. SYMBICORT [Suspect]
     Indication: CHRONIC OBSTRUCTIVE PULMONARY DISEASE
     Dosage: TWO INHALATIONS BID
     Route: 055
     Dates: start: 20060701, end: 20060706
  2. SPIRIVA [Suspect]
     Indication: CHRONIC OBSTRUCTIVE PULMONARY DISEASE
     Dosage: ONE INHALATION DAILY
     Route: 055
     Dates: start: 20060629, end: 20060706
  3. ATACAND [Concomitant]
     Route: 048
     Dates: start: 20060515
  4. NEXIUM [Concomitant]
     Route: 048
     Dates: start: 20060629
  5. ATORVASTATIN CALCIUM [Concomitant]
     Route: 048
     Dates: start: 19990615
  6. PLAVIX [Concomitant]
     Dates: start: 19990101
  7. NASONEX [Concomitant]
     Route: 045
     Dates: start: 20060629
  8. DEROXAT [Concomitant]
  9. ISOPTIN [Concomitant]

REACTIONS (4)
  - CONJUNCTIVAL OEDEMA [None]
  - ERYTHEMA [None]
  - FACE OEDEMA [None]
  - RASH MACULAR [None]
